FAERS Safety Report 12154059 (Version 2)
Quarter: 2016Q1

REPORT INFORMATION
  Report Type: Spontaneous
  Country: US (occurrence: US)
  Receive Date: 20160307
  Receipt Date: 20160307
  Transmission Date: 20160526
  Serious: Yes (Other)
  Sender: FDA-Public Use
  Company Number: CHPA2016US002853

PATIENT
  Age: 61 Year
  Sex: Female

DRUGS (5)
  1. VOLTAREN [Suspect]
     Active Substance: DICLOFENAC SODIUM
     Indication: MYALGIA
  2. VOLTAREN [Suspect]
     Active Substance: DICLOFENAC SODIUM
     Indication: NEUROPATHY PERIPHERAL
  3. VOLTAREN [Suspect]
     Active Substance: DICLOFENAC SODIUM
     Indication: SENSORY DISTURBANCE
  4. VOLTAREN [Suspect]
     Active Substance: DICLOFENAC SODIUM
     Indication: HYPOAESTHESIA
  5. VOLTAREN [Suspect]
     Active Substance: DICLOFENAC SODIUM
     Indication: PAIN
     Dosage: SEVERAL TIMES A DAY, PRN
     Route: 061
     Dates: start: 2012

REACTIONS (16)
  - Concussion [Recovering/Resolving]
  - Fall [Unknown]
  - Haemorrhage [Recovered/Resolved]
  - Product use issue [Unknown]
  - Ligament rupture [Recovering/Resolving]
  - Osteoporosis [Not Recovered/Not Resolved]
  - Joint dislocation [Recovering/Resolving]
  - Head injury [Recovering/Resolving]
  - Wrong technique in product usage process [Unknown]
  - Joint injury [Recovering/Resolving]
  - Clumsiness [Recovering/Resolving]
  - Drug administered at inappropriate site [Unknown]
  - Arthralgia [Recovering/Resolving]
  - Limb injury [Recovering/Resolving]
  - Wound [Recovered/Resolved]
  - Inappropriate schedule of drug administration [Unknown]

NARRATIVE: CASE EVENT DATE: 2012
